FAERS Safety Report 4648517-9 (Version None)
Quarter: 2005Q2

REPORT INFORMATION
  Report Type: 
  Country: None (occurrence: None)
  Receive Date: 20050429
  Receipt Date: 20040825
  Transmission Date: 20051028
  Serious: Yes (Disabling)
  Sender: FDA-Public Use
  Company Number: US-BRISTOL-MYERS SQUIBB COMPANY-12682456

PATIENT
  Age: 66 Year
  Sex: Female

DRUGS (6)
  1. TEQUIN [Suspect]
     Indication: ASTHMA
     Route: 048
     Dates: start: 20040608, end: 20040612
  2. QVAR 40 [Concomitant]
  3. FORADIL [Concomitant]
  4. SINGULAIR [Concomitant]
  5. FAMOTIDINE [Concomitant]
  6. BACLOFEN [Concomitant]

REACTIONS (5)
  - AGEUSIA [None]
  - ANOSMIA [None]
  - DIZZINESS [None]
  - HEADACHE [None]
  - INSOMNIA [None]
